FAERS Safety Report 6020516-4 (Version None)
Quarter: 2008Q4

REPORT INFORMATION
  Report Type: 
  Country: None (occurrence: None)
  Receive Date: 20081226
  Receipt Date: 20081218
  Transmission Date: 20090506
  Serious: Yes (Hospitalization, Other)
  Sender: FDA-Public Use
  Company Number: US-ABBOTT-08P-163-0493620-00

PATIENT
  Sex: Female
  Weight: 38.59 kg

DRUGS (6)
  1. HUMIRA [Suspect]
     Indication: CROHN'S DISEASE
     Route: 058
     Dates: start: 20060101
  2. HUMIRA [Suspect]
     Route: 058
  3. FLAGYL [Concomitant]
     Indication: CROHN'S DISEASE
     Dosage: UNKNOWN
  4. MERCAPTOPURINE [Concomitant]
     Indication: CROHN'S DISEASE
     Dosage: UNKNOWN
  5. ASACOL [Concomitant]
     Indication: CROHN'S DISEASE
     Dosage: UNKNOWN
  6. RESCUE INHALER [Concomitant]
     Indication: ASTHMA

REACTIONS (9)
  - ABDOMINAL PAIN [None]
  - COLITIS [None]
  - CROHN'S DISEASE [None]
  - DEHYDRATION [None]
  - DIARRHOEA [None]
  - IRON DEFICIENCY [None]
  - MALNUTRITION [None]
  - PYREXIA [None]
  - SMALL INTESTINAL STENOSIS [None]
